FAERS Safety Report 21418163 (Version 2)
Quarter: 2022Q4

REPORT INFORMATION
  Report Type: Other
  Country: US (occurrence: None)
  Receive Date: 20221006
  Receipt Date: 20221013
  Transmission Date: 20230113
  Serious: Yes (Hospitalization, Other)
  Sender: FDA-Public Use
  Company Number: US-ROCHE-3194838

PATIENT
  Age: 55 Year
  Sex: Female
  Weight: 71.732 kg

DRUGS (11)
  1. OCREVUS [Suspect]
     Active Substance: OCRELIZUMAB
     Indication: Multiple sclerosis relapse
     Dosage: DATE OF TREATMENT: 10/MAR/2022, 01/JUL/2021, 03/FEB/2021, 10/JAN/2020, 24/JAN/2020, 11/AUG/2020
     Route: 042
     Dates: start: 2018
  2. FOLIC ACID [Concomitant]
     Active Substance: FOLIC ACID
  3. GABAPENTIN [Concomitant]
     Active Substance: GABAPENTIN
  4. NUEDEXTA [Concomitant]
     Active Substance: DEXTROMETHORPHAN HYDROBROMIDE\QUINIDINE SULFATE
  5. LISINOPRIL [Concomitant]
     Active Substance: LISINOPRIL
  6. DEXTROAMPHET SACCHARAT, AMPHET ASPARTATE, DEXTROAMPHET SULFATE AND AMP [Concomitant]
     Active Substance: AMPHETAMINE ASPARTATE\AMPHETAMINE SULFATE\DEXTROAMPHETAMINE SACCHARATE\DEXTROAMPHETAMINE SULFATE
  7. BRIVARACETAM [Concomitant]
     Active Substance: BRIVARACETAM
  8. AMITRIPTYLINE [Concomitant]
     Active Substance: AMITRIPTYLINE
  9. HYDROCODONE [Concomitant]
     Active Substance: HYDROCODONE
  10. ATORVASTATIN [Concomitant]
     Active Substance: ATORVASTATIN
  11. ZYRTEC [Concomitant]
     Active Substance: CETIRIZINE HYDROCHLORIDE

REACTIONS (2)
  - Seizure [Recovered/Resolved]
  - Urinary tract infection [Recovered/Resolved]

NARRATIVE: CASE EVENT DATE: 20220827
